FAERS Safety Report 9961881 (Version 1)
Quarter: 2014Q1

REPORT INFORMATION
  Report Type: Report from Study
  Country: US (occurrence: US)
  Receive Date: 20140305
  Receipt Date: 20140305
  Transmission Date: 20141002
  Serious: Yes (Other)
  Sender: FDA-Public Use
  Company Number: US-ABBVIE-13P-163-1111525-00

PATIENT
  Age: 61 Year
  Sex: Female
  Weight: 79 kg

DRUGS (13)
  1. HUMIRA [Suspect]
     Indication: CROHN^S DISEASE
     Dates: start: 201103, end: 201103
  2. HUMIRA [Suspect]
     Dates: start: 201202, end: 201202
  3. HUMIRA [Suspect]
     Dosage: TO FINISH LOADING DOSE
     Dates: start: 2012, end: 2012
  4. HUMIRA [Suspect]
     Dates: start: 201203
  5. METHOTREXATE [Concomitant]
     Indication: CROHN^S DISEASE
  6. FOLIC ACID [Concomitant]
     Indication: VITAMIN SUPPLEMENTATION
  7. IRON [Concomitant]
     Indication: ANAEMIA
  8. OMEPRAZOLE [Concomitant]
     Indication: GASTROOESOPHAGEAL REFLUX DISEASE
  9. POTASSIUM [Concomitant]
     Indication: MINERAL SUPPLEMENTATION
  10. CALCIUM WITH VITAMIN D [Concomitant]
     Indication: MINERAL SUPPLEMENTATION
  11. BENTYL [Concomitant]
     Indication: ABDOMINAL PAIN UPPER
  12. AMYTRIPTYLLINE [Concomitant]
     Indication: SLEEP DISORDER
  13. AMYTRIPTYLLINE [Concomitant]
     Indication: BURNING SENSATION

REACTIONS (3)
  - Malignant melanoma [Recovered/Resolved]
  - Injection site erythema [Not Recovered/Not Resolved]
  - Injection site pruritus [Not Recovered/Not Resolved]
